FAERS Safety Report 18962087 (Version 2)
Quarter: 2021Q1

REPORT INFORMATION
  Report Type: Spontaneous
  Country: FR (occurrence: FR)
  Receive Date: 20210303
  Receipt Date: 20210317
  Transmission Date: 20210420
  Serious: Yes (Death, Other)
  Sender: FDA-Public Use
  Company Number: NVSC2021FR047863

PATIENT
  Age: 60 Year
  Sex: Female
  Weight: 55 kg

DRUGS (4)
  1. TACROLIMUS. [Suspect]
     Active Substance: TACROLIMUS
     Indication: RENAL TRANSPLANT
     Dosage: UNK UNK, ONCE DAILY (LAST DOSE RECEIVED ON 26 MAR 2020)
     Route: 065
     Dates: start: 20200326
  2. MYFORTIC [Concomitant]
     Active Substance: MYCOPHENOLATE SODIUM
     Indication: IMMUNOSUPPRESSION
     Dosage: 1080 UNK, TOTAL DAILY DOSE
     Route: 065
     Dates: start: 20140629
  3. CICLOSPORINE [Concomitant]
     Active Substance: CYCLOSPORINE
     Indication: IMMUNOSUPPRESSION
     Dosage: 150 UNK, TOTAL DAILY DOSE
     Route: 065
     Dates: start: 20200326
  4. SOLUPRED [Concomitant]
     Indication: IMMUNOSUPPRESSION
     Dosage: 5 UNK, TOTAL DAILY DOSE
     Route: 065
     Dates: start: 20140629

REACTIONS (1)
  - Completed suicide [Fatal]

NARRATIVE: CASE EVENT DATE: 20200825
